FAERS Safety Report 5140056-4 (Version None)
Quarter: 2006Q4

REPORT INFORMATION
  Report Type: 
  Country: None (occurrence: None)
  Receive Date: 20061031
  Receipt Date: 20061020
  Transmission Date: 20070319
  Serious: Yes (Death)
  Sender: FDA-Public Use
  Company Number: US-PURDUE-USA_2006_0025449

PATIENT
  Sex: Female

DRUGS (2)
  1. OXYCONTIN [Suspect]
     Indication: DRUG USE FOR UNKNOWN INDICATION
     Dosage: 20 MG, UNK
     Dates: end: 20060101
  2. OXYCONTIN [Suspect]
     Dosage: 40 MG, UNK
     Dates: end: 20060101

REACTIONS (1)
  - DEATH [None]
